FAERS Safety Report 5566922-3 (Version None)
Quarter: 2007Q4

REPORT INFORMATION
  Report Type: 
  Country: None (occurrence: None)
  Receive Date: 20071219
  Receipt Date: 20070220
  Transmission Date: 20080405
  Serious: No
  Sender: FDA-Public Use
  Company Number: US-BRISTOL-MYERS SQUIBB COMPANY-13684717

PATIENT
  Age: 45 Year
  Sex: Male
  Weight: 82 kg

DRUGS (1)
  1. PRAVASTATIN SODIUM [Suspect]
     Indication: BLOOD CHOLESTEROL INCREASED

REACTIONS (1)
  - TINNITUS [None]
